FAERS Safety Report 5494516-7 (Version None)
Quarter: 2007Q4

REPORT INFORMATION
  Report Type: 
  Country: None (occurrence: None)
  Receive Date: 20071024
  Receipt Date: 20071011
  Transmission Date: 20080405
  Serious: Yes (Hospitalization)
  Sender: FDA-Public Use
  Company Number: FR-AMGEN-US248415

PATIENT
  Age: 30 Year
  Sex: Female

DRUGS (1)
  1. ENBREL [Suspect]
     Indication: RHEUMATOID ARTHRITIS
     Dosage: UNKNOWN
     Route: 058
     Dates: start: 20070501, end: 20070901

REACTIONS (6)
  - CHEST PAIN [None]
  - CHOROIDITIS [None]
  - DIARRHOEA [None]
  - ERYTHEMA NODOSUM [None]
  - INFLAMMATORY BOWEL DISEASE [None]
  - IRIDOCYCLITIS [None]
